FAERS Safety Report 6718149-7 (Version None)
Quarter: 2010Q2

REPORT INFORMATION
  Report Type: 
  Country: None (occurrence: None)
  Receive Date: 20100510
  Receipt Date: 20100504
  Transmission Date: 20101027
  Serious: Yes (Hospitalization)
  Sender: FDA-Public Use
  Company Number: B0651814A

PATIENT
  Sex: Male

DRUGS (1)
  1. HYCAMTIN [Suspect]
     Route: 065

REACTIONS (1)
  - VASCULITIS [None]
